FAERS Safety Report 7133536-3 (Version None)
Quarter: 2010Q4

REPORT INFORMATION
  Report Type: 
  Country: None (occurrence: None)
  Receive Date: 20101202
  Receipt Date: 20101115
  Transmission Date: 20110411
  Serious: Yes (Hospitalization)
  Sender: FDA-Public Use
  Company Number: DE-PFIZER INC-2009241057

PATIENT
  Age: 65 Year
  Sex: Female
  Weight: 64 kg

DRUGS (16)
  1. ZYVOX [Suspect]
     Indication: INTERVERTEBRAL DISCITIS
     Dosage: 600 MG, 2X/DAY
     Route: 048
     Dates: start: 20080922, end: 20081009
  2. ZYVOX [Suspect]
     Dosage: 600 MG, 2X/DAY
     Route: 048
     Dates: start: 20081025, end: 20090127
  3. RAMIPRIL [Suspect]
     Indication: HYPERTENSION
     Dosage: 2.5 MG, 1X/DAY
     Route: 048
     Dates: start: 20080901, end: 20081009
  4. CORDAREX [Suspect]
     Dosage: 200 MG, 1X/DAY
     Route: 048
     Dates: start: 20080901, end: 20081010
  5. NOVALGIN [Suspect]
     Indication: PAIN
     Dosage: 500 MG, 3X/DAY
     Route: 048
     Dates: start: 20080905, end: 20081009
  6. SPIRONOLACTONE [Interacting]
     Indication: HYPERTENSION
     Dosage: 100 MG, 1X/DAY
     Route: 048
     Dates: start: 20080901, end: 20081009
  7. TOREM [Interacting]
     Indication: HYPERTENSION
     Dosage: 10 MG, 2X/DAY
     Route: 048
     Dates: start: 20080729
  8. XIPAMIDE [Interacting]
     Indication: HYPERTENSION
     Dosage: 10 MG, 1X/DAY
     Route: 048
     Dates: start: 20080729, end: 20081008
  9. PARACETAMOL [Concomitant]
     Indication: PAIN
     Dosage: 1 G, 3X/DAY
     Route: 048
     Dates: start: 20080905, end: 20081003
  10. AMITRIPTYLINE [Concomitant]
     Indication: PAIN
     Dosage: 50 MG, 2X/DAY
     Dates: start: 20080729, end: 20081008
  11. METOPROLOL SUCCINATE [Concomitant]
     Indication: HYPERTENSION
     Dosage: 95 MG, 1X/DAY
     Route: 048
     Dates: start: 20080901
  12. CLEXANE [Concomitant]
     Indication: THROMBOSIS PROPHYLAXIS
     Dosage: 60 MG, 1X/DAY
     Route: 058
     Dates: start: 20080729, end: 20081007
  13. DIGITOXIN [Concomitant]
     Indication: ATRIAL FIBRILLATION
     Dosage: 0.07 MG, 1X/DAY
     Route: 048
     Dates: start: 20061201
  14. OMEPRAZOLE [Concomitant]
     Indication: PROPHYLAXIS AGAINST GASTROINTESTINAL ULCER
     Dosage: 40 MG, 1X/DAY
     Route: 048
     Dates: start: 20061201
  15. OXYCODONE [Concomitant]
     Indication: PAIN
     Dosage: 10 MG, 2X/DAY
     Route: 048
     Dates: start: 20080901
  16. SIMVASTATIN [Concomitant]
     Indication: HYPERLIPIDAEMIA
     Dosage: 20 MG, 1X/DAY
     Route: 048
     Dates: start: 20061201

REACTIONS (4)
  - DRUG INTERACTION [None]
  - NEPHROGENIC ANAEMIA [None]
  - RENAL FAILURE [None]
  - RENAL FAILURE ACUTE [None]
